FAERS Safety Report 4965828-8 (Version None)
Quarter: 2006Q2

REPORT INFORMATION
  Report Type: 
  Country: None (occurrence: None)
  Receive Date: 20060407
  Receipt Date: 20060323
  Transmission Date: 20061013
  Serious: Yes (Death, Hospitalization)
  Sender: FDA-Public Use
  Company Number: CA-AMGEN-US173524

PATIENT
  Age: 91 Year
  Sex: Female
  Weight: 74 kg

DRUGS (5)
  1. ENBREL [Suspect]
     Indication: RHEUMATOID ARTHRITIS
     Route: 058
     Dates: start: 20031031, end: 20060219
  2. METHOTREXATE [Concomitant]
  3. PREDNISONE [Concomitant]
  4. PLAQUENIL [Concomitant]
  5. FOSAMAX [Concomitant]

REACTIONS (12)
  - ABDOMINAL PAIN [None]
  - AGITATION [None]
  - BLOOD CREATINE PHOSPHOKINASE INCREASED [None]
  - DELIRIUM [None]
  - DIARRHOEA [None]
  - ERYSIPELAS [None]
  - ERYTHEMA [None]
  - PYREXIA [None]
  - RENAL FAILURE ACUTE [None]
  - RESPIRATORY RATE INCREASED [None]
  - SWELLING FACE [None]
  - TROPONIN INCREASED [None]
